FAERS Safety Report 13679328 (Version 1)
Quarter: 2017Q2

REPORT INFORMATION
  Report Type: Spontaneous
  Country: US (occurrence: US)
  Receive Date: 20170622
  Receipt Date: 20170622
  Transmission Date: 20170830
  Serious: Yes (Other)
  Sender: FDA-Public Use
  Company Number: US-LPDUSPRD-20170825

PATIENT

DRUGS (5)
  1. CYCLOPHOSPHAMIDE. [Suspect]
     Active Substance: CYCLOPHOSPHAMIDE
     Dosage: 350 MG/M2 EVERY 12 HOURS ON DA
     Route: 042
  2. MESNA. [Suspect]
     Active Substance: MESNA
     Dosage: 400MG DAILY ON DAYS 1-4
     Route: 042
  3. VINCRISTINE [Suspect]
     Active Substance: VINCRISTINE
     Dosage: 0.4MG DAILY ON DAYS 1-4
     Route: 042
  4. DEXAMETHASONE SODIUM PHOSPHATE INJECTION, USP (4901-25) [Suspect]
     Active Substance: DEXAMETHASONE SODIUM PHOSPHATE
     Dosage: 40MG DAILY ON DAYS 1-4
     Route: 042
  5. DOXORUBICIN [Suspect]
     Active Substance: DOXORUBICIN
     Dosage: 10 MG/M2 DAILY ON DAYS 1-4
     Route: 042

REACTIONS (2)
  - Staphylococcal infection [Unknown]
  - Device related infection [Unknown]
